FAERS Safety Report 7856310-9 (Version None)
Quarter: 2011Q4

REPORT INFORMATION
  Report Type: 
  Country: None (occurrence: None)
  Receive Date: 20111026
  Receipt Date: 20111007
  Transmission Date: 20120403
  Serious: Yes (Congenital Anomaly)
  Sender: FDA-Public Use
  Company Number: PHHY2011DE92900

PATIENT

DRUGS (6)
  1. PREDNISOLONE [Concomitant]
     Dosage: UNK MG, UNK
     Route: 064
  2. RAMIPRIL [Suspect]
     Dosage: UNK MG, UNK
     Route: 064
  3. TORSEMIDE [Suspect]
     Dosage: UNK MG, UNK
     Route: 064
  4. CYCLOSPORINE [Suspect]
     Dosage: UNK MG, UNK
     Route: 064
  5. FALITHROM [Suspect]
     Dosage: UNK MG, UNK
     Route: 064
  6. ENOXAPARIN SODIUM [Concomitant]
     Dosage: UNK MG, UNK
     Route: 064

REACTIONS (4)
  - SINGLE UMBILICAL ARTERY [None]
  - TRICUSPID VALVE INCOMPETENCE [None]
  - MATERNAL EXPOSURE DURING PREGNANCY [None]
  - FALLOT'S TETRALOGY [None]
